FAERS Safety Report 4340484-0 (Version None)
Quarter: 2004Q2

REPORT INFORMATION
  Report Type: 
  Country: None (occurrence: None)
  Receive Date: 20040414
  Receipt Date: 20040326
  Transmission Date: 20050107
  Serious: Yes (Life-Threatening, Hospitalization, Other)
  Sender: FDA-Public Use
  Company Number: EM2004-0170

PATIENT
  Age: 57 Year
  Sex: Male
  Weight: 80.7 kg

DRUGS (7)
  1. PROLEUKIN [Suspect]
     Indication: MALIGNANT MELANOMA
     Dosage: 1.33  MG/M2, Q12H, INTRAVENOUS
     Route: 042
     Dates: start: 20040315, end: 20040319
  2. LEVAQUIN [Concomitant]
  3. DILANTIN [Concomitant]
  4. KEPPRA [Concomitant]
  5. DECADRON [Concomitant]
  6. THALIDOMIDE (THALIDOMIDE) [Concomitant]
  7. EFFEXOR XR [Concomitant]

REACTIONS (5)
  - BLOOD LACTATE DEHYDROGENASE INCREASED [None]
  - CONVULSION [None]
  - HAEMOLYSIS [None]
  - RENAL FAILURE ACUTE [None]
  - THROMBOTIC THROMBOCYTOPENIC PURPURA [None]
